FAERS Safety Report 18770982 (Version 1)
Quarter: 2021Q1

REPORT INFORMATION
  Report Type: Spontaneous
  Country: US (occurrence: US)
  Receive Date: 20210121
  Receipt Date: 20210121
  Transmission Date: 20210419
  Serious: No
  Sender: FDA-Public Use
  Company Number: US-TEVA-2021-US-1872379

PATIENT
  Age: 69 Year
  Sex: Female

DRUGS (3)
  1. ANASTROZOLE. [Suspect]
     Active Substance: ANASTROZOLE
     Route: 065
  2. LETROZOLE. [Suspect]
     Active Substance: LETROZOLE
     Route: 065
  3. EXEMESTANE. [Suspect]
     Active Substance: EXEMESTANE
     Route: 065

REACTIONS (2)
  - Feeling abnormal [Unknown]
  - Fatigue [Not Recovered/Not Resolved]
